FAERS Safety Report 10066153 (Version 1)
Quarter: 2014Q2

REPORT INFORMATION
  Report Type: Spontaneous
  Country: US (occurrence: US)
  Receive Date: 20140408
  Receipt Date: 20140408
  Transmission Date: 20141212
  Serious: No
  Sender: FDA-Public Use
  Company Number: US-PFIZER INC-2014096981

PATIENT
  Age: 53 Year
  Sex: Female
  Weight: 61.22 kg

DRUGS (3)
  1. IBUPROFEN [Suspect]
     Dosage: UNK
  2. ASPIRIN [Concomitant]
     Indication: ARTHRITIS
     Dosage: UNK
  3. TYLENOL [Concomitant]
     Indication: ARTHRITIS
     Dosage: UNK

REACTIONS (1)
  - Abdominal discomfort [Unknown]
